FAERS Safety Report 9601612 (Version 3)
Quarter: 2015Q4

REPORT INFORMATION
  Report Type: Report from Study
  Country: US (occurrence: US)
  Receive Date: 20131007
  Receipt Date: 20151020
  Transmission Date: 20160305
  Serious: Yes (Other)
  Sender: FDA-Public Use
  Company Number: US-ROCHE-1277505

PATIENT
  Age: 55 Year
  Sex: Male
  Weight: 70.82 kg

DRUGS (9)
  1. ACTEMRA [Suspect]
     Active Substance: TOCILIZUMAB
     Dosage: UPTITRATED TO 8 MG/KG FOR 2 MONTHS
     Route: 042
     Dates: start: 20130628, end: 20130712
  2. ACTEMRA [Suspect]
     Active Substance: TOCILIZUMAB
     Route: 042
     Dates: start: 201304
  3. ACTEMRA [Suspect]
     Active Substance: TOCILIZUMAB
     Route: 042
     Dates: start: 201306, end: 20130712
  4. ACTEMRA [Suspect]
     Active Substance: TOCILIZUMAB
     Route: 042
     Dates: start: 201307, end: 201307
  5. ACTEMRA [Suspect]
     Active Substance: TOCILIZUMAB
     Indication: RHEUMATOID ARTHRITIS
     Route: 042
     Dates: start: 20130101, end: 20130701
  6. ACTEMRA [Suspect]
     Active Substance: TOCILIZUMAB
     Dosage: UPTITRATED TO 8 MG/KG FOR 2 MONTHS
     Route: 042
     Dates: start: 20130628
  7. LIPITOR [Concomitant]
     Active Substance: ATORVASTATIN CALCIUM
     Indication: BLOOD CHOLESTEROL INCREASED
     Route: 048
  8. ACTEMRA [Suspect]
     Active Substance: TOCILIZUMAB
     Route: 042
     Dates: start: 201305
  9. ACTEMRA [Suspect]
     Active Substance: TOCILIZUMAB
     Route: 042

REACTIONS (2)
  - Tuberculosis [Not Recovered/Not Resolved]
  - Tuberculin test positive [Recovered/Resolved]

NARRATIVE: CASE EVENT DATE: 20130701
